FAERS Safety Report 4488705-8 (Version None)
Quarter: 2004Q4

REPORT INFORMATION
  Report Type: 
  Country: None (occurrence: None)
  Receive Date: 20041025
  Receipt Date: 20041011
  Transmission Date: 20050328
  Serious: Yes (Hospitalization)
  Sender: FDA-Public Use
  Company Number: 200412785GDS

PATIENT
  Age: 72 Year
  Sex: Female

DRUGS (4)
  1. ASPIRIN [Suspect]
     Indication: PROPHYLAXIS
     Dosage: 100 MG, QD, ORAL
     Route: 048
     Dates: start: 20040912, end: 20040918
  2. PIPERACILLIN SODIUM [Suspect]
     Dosage: 2 G, BID, INTRAVENOUS
     Route: 042
     Dates: start: 20040912, end: 20040918
  3. LEVOPRAID [Concomitant]
  4. LUXAZONE [Concomitant]

REACTIONS (3)
  - ACUTE GENERALISED EXANTHEMATOUS PUSTULOSIS [None]
  - BULLOUS IMPETIGO [None]
  - STAPHYLOCOCCAL SCALDED SKIN SYNDROME [None]
